FAERS Safety Report 5967444-8 (Version None)
Quarter: 2008Q4

REPORT INFORMATION
  Report Type: 
  Country: None (occurrence: None)
  Receive Date: 20081125
  Receipt Date: 20081118
  Transmission Date: 20090506
  Serious: Yes (Hospitalization, Other)
  Sender: FDA-Public Use
  Company Number: US-GILEAD-2008-0019099

PATIENT
  Sex: Male
  Weight: 83 kg

DRUGS (12)
  1. LETAIRIS [Suspect]
     Indication: PULMONARY ARTERIAL HYPERTENSION
  2. REMODULIN [Concomitant]
  3. REVATIO [Concomitant]
  4. ALDACTONE [Concomitant]
  5. OXYGEN [Concomitant]
  6. SYMBICORT [Concomitant]
  7. SPIRIVA [Concomitant]
  8. NEXIUM [Concomitant]
  9. OXYCONTIN [Concomitant]
  10. TRAMADOL HCL [Concomitant]
  11. DILAUDID [Concomitant]
  12. MULTI-VITAMIN [Concomitant]

REACTIONS (2)
  - CONJUNCTIVAL HAEMORRHAGE [None]
  - HYPERSENSITIVITY [None]
